FAERS Safety Report 6054088-5 (Version None)
Quarter: 2009Q1

REPORT INFORMATION
  Report Type: 
  Country: None (occurrence: None)
  Receive Date: 20090127
  Receipt Date: 20090116
  Transmission Date: 20090719
  Serious: Yes (Disabling)
  Sender: FDA-Public Use
  Company Number: SE-ROCHE-608798

PATIENT
  Sex: Female

DRUGS (5)
  1. PEG-INTERFERON ALFA 2A (RO 25-8310) [Suspect]
     Route: 058
     Dates: start: 20080229, end: 20081014
  2. RIBAVIRIN [Suspect]
     Dosage: FREQUENCY REPORTED AS 3-0-3.
     Route: 048
     Dates: start: 20080229, end: 20081014
  3. DICLOFENAC [Concomitant]
     Dates: start: 20080424
  4. OMEPRAZOLE [Concomitant]
     Dates: start: 20080221
  5. ALVEDON [Concomitant]
     Dates: start: 20080221

REACTIONS (1)
  - PANNICULITIS [None]
